FAERS Safety Report 16668748 (Version 2)
Quarter: 2019Q3

REPORT INFORMATION
  Report Type: Spontaneous
  Country: US (occurrence: US)
  Receive Date: 20190805
  Receipt Date: 20190814
  Transmission Date: 20191004
  Serious: Yes (Hospitalization)
  Sender: FDA-Public Use
  Company Number: US-PFIZER INC-2019329140

PATIENT
  Age: 3 Year
  Sex: Female
  Weight: 13.5 kg

DRUGS (13)
  1. FENTANYL CITRATE. [Interacting]
     Active Substance: FENTANYL CITRATE
     Dosage: 15 UG, UNKDAY 1 (1 MG/KG, 15 MG, 11:10 AM).
     Route: 040
  2. MIDAZOLAM [Concomitant]
     Active Substance: MIDAZOLAM HYDROCHLORIDE
     Indication: SEDATION
     Dosage: 5 MG, UNK
  3. MIDAZOLAM [Concomitant]
     Active Substance: MIDAZOLAM HYDROCHLORIDE
     Indication: AGITATION
     Dosage: UNK, AS NEEDED,AS-NEEDED MIDAZOLAM INFUSION (1 MG/H, STARTED DAY 1 AT 3:45 PM)
  4. NALOXONE [Concomitant]
     Active Substance: NALOXONE
     Indication: TOXICITY TO VARIOUS AGENTS
  5. HYDROMORPHONE HYDROCHLORIDE. [Interacting]
     Active Substance: HYDROMORPHONE HYDROCHLORIDE
     Dosage: UNK (PILLS)
     Route: 048
  6. MIDAZOLAM [Concomitant]
     Active Substance: MIDAZOLAM HYDROCHLORIDE
     Dosage: UNK, (1.5 MG/H, STARTED DAY 3 AT 6:00 PM)
  7. FENTANYL CITRATE. [Suspect]
     Active Substance: FENTANYL CITRATE
     Indication: SEDATION
     Dosage: 100 UG, UNK
  8. FENTANYL CITRATE. [Interacting]
     Active Substance: FENTANYL CITRATE
     Dosage: UNK, AS NEEDED AS-NEEDED FENTANYL INFUSION (2 MG/KG/H, STARTED DAY 1 AT 12:30AM)
  9. FENTANYL CITRATE. [Interacting]
     Active Substance: FENTANYL CITRATE
     Dosage: UNK
  10. HYDROCODONE [Interacting]
     Active Substance: HYDROCODONE
     Dosage: UNK (PILLS)
     Route: 048
  11. NALOXONE [Concomitant]
     Active Substance: NALOXONE
     Indication: ACCIDENTAL OVERDOSE
     Dosage: 2 DF, UNK (TWO DOSES)
  12. FENTANYL CITRATE. [Interacting]
     Active Substance: FENTANYL CITRATE
     Indication: ANALGESIC THERAPY
     Dosage: 7 UG, UNK (ON DAY 0 (0.5 MG/KG, 7 MG, 1:07 PM)
     Route: 040
  13. DIHYDROCODEINE [Interacting]
     Active Substance: DIHYDROCODEINE
     Dosage: UNK (PILLS)
     Route: 048

REACTIONS (3)
  - Drug interaction [Unknown]
  - Condition aggravated [Unknown]
  - Brain oedema [Recovering/Resolving]
